FAERS Safety Report 9214395 (Version 1)
Quarter: 2013Q2

REPORT INFORMATION
  Report Type: Report from Study
  Country: KR (occurrence: KR)
  Receive Date: 20130405
  Receipt Date: 20130405
  Transmission Date: 20140414
  Serious: Yes (Death)
  Sender: FDA-Public Use
  Company Number: KR-PFIZER INC-2013104278

PATIENT
  Age: 96 Month
  Sex: Male

DRUGS (13)
  1. CARBOPLATIN [Suspect]
     Indication: MEDULLOBLASTOMA
     Dosage: 300 MG/M2/DAY ON DAYS 0,1, 28-DAY-CYCLE
  2. CARBOPLATIN [Suspect]
     Dosage: 500 MG/M2/DAY ON DAYS -8, -7, -6
  3. ETOPOSIDE [Suspect]
     Indication: MEDULLOBLASTOMA
     Dosage: 75 MG/M2/DAY ON DAYS 0, 1, 2, 28-DAY-CYCLE
  4. ETOPOSIDE [Suspect]
     Dosage: 75 MG/M2/DAY ON DAYS 0, 1, 2, 3, 4, 28-DAY-CYCLE
  5. ETOPOSIDE [Suspect]
     Dosage: 250 MG/M2/DAY ON DAYS -5, -4, -3
  6. THIOTEPA [Suspect]
     Indication: MEDULLOBLASTOMA
     Dosage: 300 MG/M2/DAY ON DAYS -5, -4, -3
  7. CYCLOPHOSPHAMIDE [Suspect]
     Indication: MEDULLOBLASTOMA
     Dosage: 1500 MG/M2/DAY ON DAYS 1,2, 28-DAY-CYCLE
  8. CYCLOPHOSPHAMIDE [Suspect]
     Dosage: 1500 MG/M2/DAY ON DAYS -8, -7, -6, -5
  9. MELPHALAN [Suspect]
     Indication: MEDULLOBLASTOMA
     Dosage: 60 MG/M2/DAY ON DAYS -4, -3, -2
  10. VINCRISTINE [Concomitant]
     Indication: MEDULLOBLASTOMA
     Dosage: 1.5 MG/M2/DAY ON DAYS 0,7, 28-DAY-CYCLE
  11. VINCRISTINE [Concomitant]
     Dosage: 1.5 MG/M2/DAY ON DAYS 0, 7, 28-DAY-CYCLE
  12. IFOSFAMIDE [Concomitant]
     Indication: MEDULLOBLASTOMA
     Dosage: 1500 MG/M2/DAY ON DAYS 0, 1, 2, 3, 4
  13. CISPLATIN [Concomitant]
     Indication: MEDULLOBLASTOMA
     Dosage: 90 MG/M2/DAY ON DAY 0, 28-DAY-CYCLE

REACTIONS (1)
  - Venoocclusive liver disease [Fatal]
